FAERS Safety Report 23251315 (Version 1)
Quarter: 2023Q4

REPORT INFORMATION
  Report Type: Spontaneous
  Country: FR (occurrence: None)
  Receive Date: 20231201
  Receipt Date: 20231201
  Transmission Date: 20240110
  Serious: Yes (Hospitalization)
  Sender: FDA-Public Use
  Company Number: 2023A271514

PATIENT
  Age: 78 Year
  Sex: Female
  Weight: 56.7 kg

DRUGS (2)
  1. ROSUVASTATIN [Suspect]
     Active Substance: ROSUVASTATIN
     Indication: Cardiovascular event prophylaxis
     Dosage: 5 MILLIGRAM, 1/DAY
  2. NEBIVOLOL [Suspect]
     Active Substance: NEBIVOLOL
     Indication: Myocardial ischaemia
     Dosage: UNK

REACTIONS (1)
  - Cutaneous lupus erythematosus [Recovering/Resolving]

NARRATIVE: CASE EVENT DATE: 20230301
